FAERS Safety Report 5953247-7 (Version None)
Quarter: 2008Q4

REPORT INFORMATION
  Report Type: 
  Country: None (occurrence: None)
  Receive Date: 20081114
  Receipt Date: 20081106
  Transmission Date: 20090506
  Serious: Yes (Other)
  Sender: FDA-Public Use
  Company Number: PHHY2008BE24614

PATIENT

DRUGS (15)
  1. GLEEVEC [Suspect]
     Indication: CHRONIC MYELOID LEUKAEMIA
     Dosage: UNK
     Route: 048
  2. DASATINIB [Suspect]
     Indication: CHRONIC MYELOID LEUKAEMIA
  3. TASIGNA [Suspect]
     Indication: CHRONIC MYELOID LEUKAEMIA
     Dosage: 400 MG DAILY
     Route: 048
     Dates: start: 20080708, end: 20080825
  4. INSULATARD [Concomitant]
  5. NOVONORM [Concomitant]
  6. METFORMAX [Concomitant]
  7. CORDARONE [Concomitant]
  8. BURINEX [Concomitant]
  9. ALDACTONE [Concomitant]
  10. XANAX [Concomitant]
  11. ZESTRIL [Concomitant]
  12. CARVEDILOL [Concomitant]
  13. CARDIO ASPIRINA [Concomitant]
  14. ZOCOR [Concomitant]
  15. ZANTAC [Concomitant]

REACTIONS (4)
  - CARDIAC FAILURE [None]
  - DYSPNOEA [None]
  - OEDEMA PERIPHERAL [None]
  - PULMONARY OEDEMA [None]
